FAERS Safety Report 14979024 (Version 1)
Quarter: 2018Q2

REPORT INFORMATION
  Report Type: Other
  Country: ES (occurrence: ES)
  Receive Date: 20180606
  Receipt Date: 20180606
  Transmission Date: 20180711
  Serious: Yes (Other)
  Sender: FDA-Public Use
  Company Number: ES-ASTELLAS-2018US024993

PATIENT
  Age: 80 Year
  Sex: Female

DRUGS (1)
  1. VESICARE [Suspect]
     Active Substance: SOLIFENACIN SUCCINATE
     Indication: URINARY INCONTINENCE
     Route: 048
     Dates: start: 20180214, end: 20180414

REACTIONS (3)
  - Speech disorder [Unknown]
  - Dysphonia [Unknown]
  - Dysphagia [Unknown]

NARRATIVE: CASE EVENT DATE: 2018
